FAERS Safety Report 18390895 (Version 1)
Quarter: 2020Q4

REPORT INFORMATION
  Report Type: Report from Study
  Country: None (occurrence: US)
  Receive Date: 20201015
  Receipt Date: 20201015
  Transmission Date: 20210114
  Serious: Yes (Other)
  Sender: FDA-Public Use
  Company Number: US-ABBVIE-20K-163-3523086-00

PATIENT
  Age: 62 Year
  Sex: Female
  Weight: 45.4 kg

DRUGS (2)
  1. HUMIRA [Suspect]
     Active Substance: ADALIMUMAB
     Indication: PSORIASIS
     Route: 058
     Dates: start: 20191209
  2. HUMIRA [Suspect]
     Active Substance: ADALIMUMAB
     Indication: GASTRIC DISORDER

REACTIONS (4)
  - Lower respiratory tract infection [Recovered/Resolved]
  - Sputum discoloured [Unknown]
  - Pneumothorax [Unknown]
  - Pulmonary oedema [Unknown]

NARRATIVE: CASE EVENT DATE: 202001
